FAERS Safety Report 23836881 (Version 1)
Quarter: 2024Q2

REPORT INFORMATION
  Report Type: Spontaneous
  Country: US (occurrence: None)
  Receive Date: 20240509
  Receipt Date: 20240509
  Transmission Date: 20240716
  Serious: Yes (Other)
  Sender: FDA-Public Use
  Company Number: 2024A104086

PATIENT
  Sex: Female

DRUGS (1)
  1. TEZEPELUMAB [Suspect]
     Active Substance: TEZEPELUMAB
     Dosage: HAS BEEN ON TEZSPIRE FOR 1 1/2 YEARS

REACTIONS (2)
  - Eosinophil count abnormal [Unknown]
  - Drug ineffective [Unknown]
